FAERS Safety Report 11679654 (Version 2)
Quarter: 2015Q4

REPORT INFORMATION
  Report Type: Spontaneous
  Country: US (occurrence: US)
  Receive Date: 20151027
  Receipt Date: 20151104
  Transmission Date: 20160304
  Serious: No
  Sender: FDA-Public Use
  Company Number: US-ELI_LILLY_AND_COMPANY-US201006005803

PATIENT
  Age: 71 Year
  Sex: Female

DRUGS (2)
  1. CALCIUM [Concomitant]
     Active Substance: CALCIUM
     Indication: MINERAL SUPPLEMENTATION
  2. FORTEO [Suspect]
     Active Substance: TERIPARATIDE
     Indication: PELVIC FRACTURE
     Dosage: UNK, UNK
     Dates: start: 20090515

REACTIONS (11)
  - Intervertebral disc disorder [Unknown]
  - Arthropathy [Unknown]
  - Asthenia [Recovering/Resolving]
  - Blood calcium increased [Recovering/Resolving]
  - Bursitis [Unknown]
  - Muscular weakness [Unknown]
  - Constipation [Recovering/Resolving]
  - Off label use [Not Recovered/Not Resolved]
  - Vitamin D decreased [Unknown]
  - Sciatica [Not Recovered/Not Resolved]
  - Musculoskeletal pain [Not Recovered/Not Resolved]

NARRATIVE: CASE EVENT DATE: 20090515
